FAERS Safety Report 9927547 (Version 3)
Quarter: 2014Q1

REPORT INFORMATION
  Report Type: Report from Study
  Country: US (occurrence: US)
  Receive Date: 20140227
  Receipt Date: 20140326
  Transmission Date: 20141002
  Serious: Yes (Hospitalization)
  Sender: FDA-Public Use
  Company Number: US-PFIZER INC-2011206365

PATIENT
  Age: 70 Year
  Sex: Female
  Weight: 84.35 kg

DRUGS (22)
  1. BLINDED CELECOXIB [Suspect]
     Indication: OSTEOARTHRITIS
     Dosage: 3X/DAY
     Route: 048
     Dates: start: 20080712, end: 20110320
  2. BLINDED IBUPROFEN [Suspect]
     Indication: OSTEOARTHRITIS
     Dosage: 3X/DAY
     Route: 048
     Dates: start: 20080712, end: 20110320
  3. BLINDED IBUPROFEN [Suspect]
     Indication: OSTEOARTHRITIS
     Dosage: 3X/DAY
     Route: 048
     Dates: start: 20080712, end: 20110320
  4. BLINDED IBUPROFEN [Suspect]
     Indication: OSTEOARTHRITIS
     Dosage: 3X/DAY
     Route: 048
     Dates: start: 20080712, end: 20110320
  5. BLINDED NAPROXEN [Suspect]
     Indication: OSTEOARTHRITIS
     Dosage: 3X/DAY
     Route: 048
     Dates: start: 20080712, end: 20110320
  6. BLINDED NAPROXEN [Suspect]
     Indication: OSTEOARTHRITIS
     Dosage: 3X/DAY
     Route: 048
     Dates: start: 20080712, end: 20110320
  7. BLINDED NAPROXEN [Suspect]
     Indication: OSTEOARTHRITIS
     Dosage: 3X/DAY
     Route: 048
     Dates: start: 20080712, end: 20110320
  8. BLINDED PLACEBO [Suspect]
     Indication: OSTEOARTHRITIS
     Dosage: 3X/DAY
     Route: 048
     Dates: start: 20080712, end: 20110320
  9. BACTRIM [Suspect]
     Indication: STAPHYLOCOCCAL INFECTION
     Dosage: UNK
     Route: 048
     Dates: start: 20110405
  10. BACTRIM [Suspect]
     Indication: BURSITIS INFECTIVE
  11. VANCOMYCIN [Concomitant]
     Indication: STAPHYLOCOCCAL INFECTION
     Dosage: UNK
     Route: 042
     Dates: start: 20110324, end: 20110405
  12. SIMVASTATIN [Concomitant]
     Indication: HYPERCHOLESTEROLAEMIA
     Dosage: 20 MG, 1X/DAY
     Dates: start: 1998
  13. PAXIL [Concomitant]
     Indication: DEPRESSION
     Dosage: 20 MG, 1X/DAY
     Dates: start: 2006
  14. MULTIVITAMINS [Concomitant]
     Indication: VITAMIN SUPPLEMENTATION
     Dosage: 1 TAB ONCE DAILY
     Dates: start: 1998
  15. CALCIUM [Concomitant]
     Indication: VITAMIN SUPPLEMENTATION
     Dosage: 500 MG, 2X/DAY
     Dates: start: 2001
  16. VITAMIN D [Concomitant]
     Indication: VITAMIN SUPPLEMENTATION
     Dosage: 400 MG, 2X/DAY
     Dates: start: 2003
  17. FISH OIL [Concomitant]
     Indication: HYPERCHOLESTEROLAEMIA
     Dosage: 1 TAB TWICE DAILY
     Dates: start: 2003
  18. HUMALOG MIX [Concomitant]
     Indication: DIABETES MELLITUS
     Dosage: 16 IU, 2X/DAY
     Dates: start: 20080601
  19. LISINOPRIL [Concomitant]
     Indication: HYPERTENSION
     Dosage: 20 MG, 1X/DAY
     Dates: start: 20071201
  20. HYDROCHLOROTHIAZIDE [Concomitant]
     Indication: HYPERTENSION
     Dosage: 12.5 MG, 1X/DAY
     Dates: start: 20080915
  21. ATENOLOL [Concomitant]
     Indication: HYPERTENSION
     Dosage: 12.5 MG, 1X/DAY
     Dates: start: 1998, end: 20100503
  22. ATENOLOL [Concomitant]
     Dosage: 25 MG, 1X/DAY
     Dates: start: 20100504

REACTIONS (2)
  - Bursitis [Recovered/Resolved]
  - Drug eruption [Recovered/Resolved]
